FAERS Safety Report 5805292-X (Version None)
Quarter: 2008Q3

REPORT INFORMATION
  Report Type: 
  Country: None (occurrence: None)
  Receive Date: 20080707
  Receipt Date: 20080630
  Transmission Date: 20090109
  Serious: Yes (Disabling)
  Sender: FDA-Public Use
  Company Number: APP200800351

PATIENT
  Age: 54 Year
  Sex: Male
  Weight: 170 kg

DRUGS (2)
  1. SENSORCAINE-MPF WITH EPINEPHRINE (BUPIVACAINE  HYDROCHLORIDE) [Suspect]
     Indication: MUSCULOSKELETAL PAIN
     Dosage: CONTINUOUS  VIA PAIN PUMP, INJECTION
     Dates: start: 20070502
  2. I-FLOW PAIN PUMP [Suspect]
     Indication: MUSCULOSKELETAL PAIN
     Dates: start: 20070501

REACTIONS (11)
  - BURSITIS [None]
  - CALCINOSIS [None]
  - CARPAL TUNNEL SYNDROME [None]
  - CHONDROLYSIS [None]
  - HYPOAESTHESIA [None]
  - JOINT EFFUSION [None]
  - MUSCULOSKELETAL PAIN [None]
  - OSTEOARTHRITIS [None]
  - OSTEONECROSIS [None]
  - SYNOVITIS [None]
  - TENDON RUPTURE [None]
